FAERS Safety Report 20008497 (Version 1)
Quarter: 2021Q4

REPORT INFORMATION
  Report Type: Spontaneous
  Country: US (occurrence: US)
  Receive Date: 20211029
  Receipt Date: 20211029
  Transmission Date: 20220303
  Serious: Yes (Other)
  Sender: FDA-Public Use
  Company Number: US-ABBVIE-21K-163-4139425-00

PATIENT
  Sex: Female

DRUGS (7)
  1. HUMIRA [Suspect]
     Active Substance: ADALIMUMAB
     Indication: Crohn^s disease
     Route: 058
  2. HUMIRA [Suspect]
     Active Substance: ADALIMUMAB
     Indication: Rheumatoid arthritis
  3. PREDNISONE [Suspect]
     Active Substance: PREDNISONE
     Indication: Product used for unknown indication
     Route: 065
  4. HYDROXYCHLOROQUINE [Suspect]
     Active Substance: HYDROXYCHLOROQUINE
     Indication: Product used for unknown indication
     Route: 065
  5. MODERNA COVID-19 VACCINE [Concomitant]
     Active Substance: CX-024414
     Indication: COVID-19 immunisation
     Dosage: 1ST DOSE
     Route: 030
  6. MODERNA COVID-19 VACCINE [Concomitant]
     Active Substance: CX-024414
     Dosage: 2ND DOSE
     Route: 030
  7. PFIZER-BIONTECH COVID-19 VACCINE [Concomitant]
     Active Substance: TOZINAMERAN
     Indication: COVID-19 immunisation
     Dosage: DOSE 3
     Route: 030

REACTIONS (14)
  - Rotator cuff syndrome [Unknown]
  - Melanocytic naevus [Unknown]
  - Bone density abnormal [Unknown]
  - Nervous system disorder [Unknown]
  - Cardiac disorder [Unknown]
  - Heart valve incompetence [Unknown]
  - Skin mass [Unknown]
  - Suture related complication [Unknown]
  - Post procedural complication [Unknown]
  - Dysphagia [Unknown]
  - Laboratory test abnormal [Unknown]
  - Rheumatoid arthritis [Unknown]
  - Crohn^s disease [Unknown]
  - Herpes zoster [Unknown]
